FAERS Safety Report 13279085 (Version 1)
Quarter: 2017Q1

REPORT INFORMATION
  Report Type: Spontaneous
  Country: FR (occurrence: FR)
  Receive Date: 20170228
  Receipt Date: 20170228
  Transmission Date: 20170428
  Serious: Yes (Other)
  Sender: FDA-Public Use
  Company Number: FR-AMGEN-FRASP2017028854

PATIENT
  Age: 47 Year
  Sex: Female

DRUGS (1)
  1. ENBREL [Suspect]
     Active Substance: ETANERCEPT
     Indication: ANKYLOSING SPONDYLITIS
     Dosage: UNK, WEEKLY (ONE INJECTION PER WEEK)
     Route: 065
     Dates: start: 201303

REACTIONS (1)
  - Deafness neurosensory [Unknown]

NARRATIVE: CASE EVENT DATE: 201504
